FAERS Safety Report 7002551-2 (Version None)
Quarter: 2010Q3

REPORT INFORMATION
  Report Type: 
  Country: None (occurrence: None)
  Receive Date: 20100920
  Receipt Date: 20091012
  Transmission Date: 20110219
  Serious: No
  Sender: FDA-Public Use
  Company Number: US-ASTRAZENECA-2009SE14275

PATIENT
  Age: 63 Year
  Sex: Female
  Weight: 46.7 kg

DRUGS (6)
  1. SEROQUEL [Suspect]
     Route: 048
     Dates: start: 20040101, end: 20090721
  2. SEROQUEL [Suspect]
     Route: 048
     Dates: start: 20090831
  3. SEROQUEL [Suspect]
     Dosage: 50MG IN MORNING, 100MG IN EVENING
     Route: 048
  4. SEROQUEL [Suspect]
     Route: 048
     Dates: start: 20090831
  5. KLONOPIN [Concomitant]
  6. ELAVIL [Concomitant]

REACTIONS (2)
  - PRURITUS [None]
  - SKIN DISORDER [None]
